FAERS Safety Report 14686478 (Version 1)
Quarter: 2018Q1

REPORT INFORMATION
  Report Type: Spontaneous
  Country: US (occurrence: US)
  Receive Date: 20180327
  Receipt Date: 20180327
  Transmission Date: 20180509
  Serious: Yes (Hospitalization)
  Sender: FDA-Public Use
  Company Number: US-ALKERMES INC.-ALK-2018-001074

PATIENT
  Age: 55 Year
  Sex: Male

DRUGS (1)
  1. VIVITROL [Suspect]
     Active Substance: NALTREXONE
     Indication: ALCOHOLISM
     Dosage: 380 MG, QMO
     Route: 030
     Dates: start: 20180209

REACTIONS (8)
  - Fatigue [Not Recovered/Not Resolved]
  - Back injury [Unknown]
  - Myocardial infarction [Unknown]
  - Chest pain [Unknown]
  - Breath odour [Unknown]
  - Nausea [Unknown]
  - Insomnia [Not Recovered/Not Resolved]
  - Pollakiuria [Not Recovered/Not Resolved]

NARRATIVE: CASE EVENT DATE: 2018
